FAERS Safety Report 8550428 (Version 2)
Quarter: 2013Q4

REPORT INFORMATION
  Report Type: Spontaneous
  Country: GB (occurrence: GB)
  Receive Date: 20120507
  Receipt Date: 20131001
  Transmission Date: 20140711
  Serious: Yes (Hospitalization)
  Sender: FDA-Public Use
  Company Number: GB-ELI_LILLY_AND_COMPANY-GB201204008130

PATIENT
  Age: 89 Year
  Sex: Female
  Weight: 45.5 kg

DRUGS (13)
  1. FORSTEO [Suspect]
     Indication: OSTEOPOROSIS
     Dosage: 20 UG, UNK
     Route: 042
     Dates: start: 20120201, end: 20120227
  2. ADCAL D3 [Concomitant]
     Dosage: 2 DF, QD
  3. ASPIRIN [Concomitant]
     Dosage: 75 MG, QD
  4. BISOPROLOL [Concomitant]
     Dosage: 2.5 MG, UNK
  5. CITALOPRAM [Concomitant]
     Dosage: 10 MG, QD
  6. FORTISIP [Concomitant]
  7. HIDROXOCOBALAMINA [Concomitant]
     Dosage: 1 DF, 3 MONTHS
  8. HYPROMELLOSE [Concomitant]
     Indication: EYE PAIN
     Dosage: 1 DF, PRN
  9. MACROGOL [Concomitant]
     Route: 048
  10. OMEPRAZOLE [Concomitant]
     Dosage: 20 MG, QD
  11. SERETIDE [Concomitant]
     Dosage: 200 UG, QD
     Route: 055
  12. SIMVASTATIN [Concomitant]
     Dosage: 20 MG, QD
  13. TEMAZEPAM [Concomitant]
     Dosage: 10 MG, QD

REACTIONS (11)
  - Bronchitis [Unknown]
  - Bronchospasm [Recovered/Resolved]
  - Dyspnoea [Recovered/Resolved]
  - Wheezing [Recovered/Resolved]
  - Rales [Recovered/Resolved]
  - Pallor [Recovered/Resolved]
  - Anaemia [Recovered/Resolved]
  - Tachypnoea [Recovered/Resolved]
  - Lower respiratory tract infection [Recovered/Resolved]
  - Chronic obstructive pulmonary disease [Recovered/Resolved]
  - Incorrect route of drug administration [Unknown]
